FAERS Safety Report 8926621 (Version 2)
Quarter: 2013Q2

REPORT INFORMATION
  Report Type: Spontaneous
  Country: IT (occurrence: IT)
  Receive Date: 20121127
  Receipt Date: 20130408
  Transmission Date: 20140414
  Serious: Yes (Hospitalization)
  Sender: FDA-Public Use
  Company Number: IT-PFIZER INC-2012295941

PATIENT
  Age: 85 Year
  Sex: Male

DRUGS (6)
  1. TORVAST [Suspect]
     Dosage: UNK
     Route: 048
     Dates: start: 20120601
  2. CUMADIN [Suspect]
     Dosage: UNK
     Route: 048
     Dates: start: 20120601, end: 20121020
  3. ZYLORIC [Suspect]
     Dosage: 300 UG, DAILY
     Route: 048
     Dates: start: 20120601, end: 20121029
  4. CLEXANE [Concomitant]
     Dosage: UNK
     Dates: start: 20121020, end: 20121104
  5. CARDIOASPIRIN [Concomitant]
     Dosage: UNK
     Dates: start: 20121104
  6. ROCEFIN [Concomitant]
     Indication: ECZEMA IMPETIGINOUS
     Dosage: UNK

REACTIONS (5)
  - Eczema [Recovering/Resolving]
  - Erythema [Recovering/Resolving]
  - Impetigo [Recovering/Resolving]
  - Pain [Recovering/Resolving]
  - Pruritus [Recovering/Resolving]
